FAERS Safety Report 22176121 (Version 3)
Quarter: 2023Q2

REPORT INFORMATION
  Report Type: Spontaneous
  Country: IT (occurrence: IT)
  Receive Date: 20230405
  Receipt Date: 20230516
  Transmission Date: 20230721
  Serious: Yes (Death, Other)
  Sender: FDA-Public Use
  Company Number: IT-AMGEN-ITASP2023056023

PATIENT

DRUGS (1)
  1. BEVACIZUMAB [Suspect]
     Active Substance: BEVACIZUMAB
     Indication: Ovarian cancer
     Dosage: UNK
     Route: 065

REACTIONS (25)
  - Death [Fatal]
  - Anastomotic leak [Unknown]
  - Respiratory failure [Unknown]
  - Metastatic neoplasm [Unknown]
  - Anastomotic fistula [Unknown]
  - Renal impairment [Unknown]
  - Ascites [Unknown]
  - Pneumonia [Unknown]
  - Sepsis [Unknown]
  - Pulmonary embolism [Unknown]
  - Ileus [Unknown]
  - Wound infection [Unknown]
  - Hepatic enzyme increased [Unknown]
  - Pelvic haematoma [Unknown]
  - Subcutaneous haematoma [Unknown]
  - Incisional hernia [Unknown]
  - Skin burning sensation [Unknown]
  - Pleural effusion [Unknown]
  - Wound dehiscence [Unknown]
  - Intra-abdominal fluid collection [Unknown]
  - Anaemia [Unknown]
  - Urinary tract infection [Unknown]
  - Diarrhoea [Unknown]
  - Vomiting [Unknown]
  - Nausea [Unknown]
